FAERS Safety Report 7688128-4 (Version None)
Quarter: 2011Q3

REPORT INFORMATION
  Report Type: 
  Country: None (occurrence: None)
  Receive Date: 20110817
  Receipt Date: 20110804
  Transmission Date: 20111222
  Serious: Yes (Life-Threatening, Hospitalization, Other)
  Sender: FDA-Public Use
  Company Number: GB-ELI_LILLY_AND_COMPANY-GB201108001433

PATIENT
  Age: 14 Year
  Sex: Female
  Weight: 79.5 kg

DRUGS (5)
  1. ATOMOXETINE HCL [Suspect]
     Dosage: 60 MG, UNK
  2. QUETIAPINE [Concomitant]
     Indication: PERSONALITY DISORDER
     Dosage: 400 MG, UNKNOWN
  3. CONCERTA [Concomitant]
     Indication: ATTENTION DEFICIT/HYPERACTIVITY DISORDER
     Dosage: 36 MG, UNKNOWN
     Dates: start: 20110706
  4. SERTRALINE HYDROCHLORIDE [Concomitant]
  5. ATOMOXETINE HCL [Suspect]
     Indication: ATTENTION DEFICIT/HYPERACTIVITY DISORDER
     Dosage: 40 MG, UNK

REACTIONS (2)
  - ENDOTRACHEAL INTUBATION [None]
  - NEUROLEPTIC MALIGNANT SYNDROME [None]
